FAERS Safety Report 9887420 (Version 2)
Quarter: 2014Q2

REPORT INFORMATION
  Report Type: Spontaneous
  Country: DE (occurrence: DE)
  Receive Date: 20140211
  Receipt Date: 20140418
  Transmission Date: 20141212
  Serious: Yes (Death, Hospitalization)
  Sender: FDA-Public Use
  Company Number: DE-JNJFOC-20140204940

PATIENT
  Age: 82 Year
  Sex: Male
  Weight: 62 kg

DRUGS (4)
  1. XARELTO [Suspect]
     Indication: TACHYARRHYTHMIA
     Route: 048
     Dates: start: 201307
  2. XARELTO [Suspect]
     Indication: ATRIAL FIBRILLATION
     Route: 048
     Dates: start: 201307
  3. XARELTO [Suspect]
     Indication: CEREBROVASCULAR ACCIDENT PROPHYLAXIS
     Route: 048
     Dates: start: 201307
  4. METOPROLOL [Concomitant]
     Route: 065

REACTIONS (1)
  - Ischaemic stroke [Fatal]
